FAERS Safety Report 7672726-8 (Version None)
Quarter: 2011Q3

REPORT INFORMATION
  Report Type: 
  Country: None (occurrence: None)
  Receive Date: 20110809
  Receipt Date: 20110316
  Transmission Date: 20111222
  Serious: Yes (Other)
  Sender: FDA-Public Use
  Company Number: US-BAYER-200936218NA

PATIENT
  Age: 49 Year
  Sex: Female
  Weight: 85.455 kg

DRUGS (13)
  1. OPTIMARK [Suspect]
     Indication: NUCLEAR MAGNETIC RESONANCE IMAGING
  2. ANTIPSORIATICS [Concomitant]
  3. OMNISCAN [Suspect]
     Indication: NUCLEAR MAGNETIC RESONANCE IMAGING
  4. OMNIPAQUE 140 [Concomitant]
  5. OXSORALEN-ULTRA [Concomitant]
  6. OMNISCAN [Suspect]
     Indication: SYNOVITIS
  7. MULTIHANCE [Suspect]
     Indication: NUCLEAR MAGNETIC RESONANCE IMAGING
  8. EPOGEN [Concomitant]
  9. FERROUS SULFATE TAB [Concomitant]
  10. MAGNEVIST [Suspect]
     Indication: NUCLEAR MAGNETIC RESONANCE IMAGING
  11. OMNISCAN [Suspect]
     Indication: JOINT DEPOSIT
     Dates: start: 20061213, end: 20061213
  12. PROCRIT [Concomitant]
  13. METHOTREXATE [Concomitant]

REACTIONS (15)
  - SKIN EXFOLIATION [None]
  - JOINT STIFFNESS [None]
  - NEPHROGENIC SYSTEMIC FIBROSIS [None]
  - SKIN FIBROSIS [None]
  - PAIN OF SKIN [None]
  - FIBROSIS [None]
  - GENERAL PHYSICAL HEALTH DETERIORATION [None]
  - RASH MACULAR [None]
  - ERYTHEMA [None]
  - PAIN [None]
  - OEDEMA PERIPHERAL [None]
  - DEFORMITY [None]
  - OEDEMA [None]
  - SCAR [None]
  - SKIN INDURATION [None]
